FAERS Safety Report 20890086 (Version 3)
Quarter: 2023Q1

REPORT INFORMATION
  Report Type: Report from Study
  Country: US (occurrence: US)
  Receive Date: 20220530
  Receipt Date: 20230310
  Transmission Date: 20230417
  Serious: Yes (Other)
  Sender: FDA-Public Use
  Company Number: US-NOVARTISPH-NVSC2022US121372

PATIENT
  Sex: Male

DRUGS (2)
  1. ILARIS [Suspect]
     Active Substance: CANAKINUMAB
     Indication: Juvenile idiopathic arthritis
     Dosage: 150 MG, EVERY 4 WEEKS (Q4W)
     Route: 058
     Dates: start: 20201023
  2. ILARIS [Suspect]
     Active Substance: CANAKINUMAB
     Dosage: UNK
     Route: 065
     Dates: start: 20220425

REACTIONS (4)
  - Pneumonia [Unknown]
  - Malaise [Unknown]
  - Sinusitis [Unknown]
  - Ear infection [Unknown]
